FAERS Safety Report 8790866 (Version 1)
Quarter: 2012Q4

REPORT INFORMATION
  Report Type: Spontaneous
  Country: US (occurrence: None)
  Receive Date: 20120906
  Receipt Date: 20120906
  Transmission Date: 20130627
  Serious: Yes (Other)
  Sender: FDA-Public Use
  Company Number: JPI-P-022351

PATIENT
  Age: 49 Year
  Sex: Female

DRUGS (9)
  1. XYREM [Suspect]
     Indication: CATAPLEXY
     Dosage: 3 gm (1.5 gm, 2 in 1 d), oral
     Route: 048
     Dates: start: 20120623, end: 2012
  2. DEXLANSOPRAZOLE [Concomitant]
  3. RANITIDINE HYDROCHLORIDE [Concomitant]
  4. DICYCLOMINE HYDROCHLORIDE [Concomitant]
  5. MONTELUKAST SODIUM [Concomitant]
  6. MOMETASONE FUROATE MONOHYDRATE) [Concomitant]
  7. BUPROPION HYDROCHLORIDE [Concomitant]
  8. ARMODAFINIL [Concomitant]
  9. OXYCODONE/PARACETAMOL [Concomitant]

REACTIONS (12)
  - Sleep apnoea syndrome [None]
  - Middle insomnia [None]
  - Restlessness [None]
  - Nausea [None]
  - Hypoaesthesia [None]
  - Disorientation [None]
  - Oesophagitis [None]
  - Headache [None]
  - Ear pain [None]
  - Facial pain [None]
  - Gastritis [None]
  - Neck surgery [None]
